FAERS Safety Report 8203190-8 (Version None)
Quarter: 2012Q1

REPORT INFORMATION
  Report Type: 
  Country: None (occurrence: None)
  Receive Date: 20120312
  Receipt Date: 20120311
  Transmission Date: 20120608
  Serious: No
  Sender: FDA-Public Use
  Company Number: US-PFIZER INC-2012064579

PATIENT
  Sex: Male
  Weight: 94 kg

DRUGS (4)
  1. CHANTIX [Suspect]
     Dosage: UNK
     Dates: start: 20120301
  2. CHANTIX [Suspect]
     Indication: SMOKING CESSATION THERAPY
     Dosage: 0.5 MG, DAILY
     Route: 048
     Dates: start: 20120302, end: 20120301
  3. ATENOLOL [Concomitant]
     Indication: HYPERTENSION
     Dosage: 50 MG,DAILY
  4. XANAX [Suspect]
     Indication: ANXIETY
     Dosage: 0.5 MG, 3X/DAY
     Route: 048

REACTIONS (2)
  - ANGER [None]
  - ANXIETY [None]
